FAERS Safety Report 5360248-9 (Version None)
Quarter: 2007Q2

REPORT INFORMATION
  Report Type: 
  Country: None (occurrence: None)
  Receive Date: 20070612
  Receipt Date: 20070530
  Transmission Date: 20071010
  Serious: Yes (Hospitalization)
  Sender: FDA-Public Use
  Company Number: 1-14979915

PATIENT
  Age: 55 Year
  Sex: Female

DRUGS (6)
  1. DIMETHYL SULFOXIDE [Suspect]
     Indication: MULTIPLE MYELOMA
     Dosage: 10%/500ML,INTRAVENOUS (NOT SPECI  TWO DOSES OVER TWO DAYS
     Route: 042
  2. NEUPOGEN [Concomitant]
  3. MELPHALAN [Concomitant]
  4. ALLOPURINOL [Concomitant]
  5. ESCITALOPRAM OXALATE [Concomitant]
  6. LORAZEPAM [Concomitant]

REACTIONS (13)
  - ABDOMINAL PAIN [None]
  - ACTIVATED PARTIAL THROMBOPLASTIN TIME PROLONGED [None]
  - ASPARTATE AMINOTRANSFERASE INCREASED [None]
  - ASTERIXIS [None]
  - BRADYCARDIA [None]
  - CEREBRAL INFARCTION [None]
  - CLONUS [None]
  - ENCEPHALOPATHY [None]
  - FAECAL INCONTINENCE [None]
  - HYPOTENSION [None]
  - INTERNATIONAL NORMALISED RATIO DECREASED [None]
  - MYOCARDIAL INFARCTION [None]
  - VOMITING [None]
